FAERS Safety Report 12797431 (Version 3)
Quarter: 2016Q4

REPORT INFORMATION
  Report Type: Report from Study
  Country: CA (occurrence: CA)
  Receive Date: 20160930
  Receipt Date: 20161031
  Transmission Date: 20170207
  Serious: Yes (Death, Hospitalization)
  Sender: FDA-Public Use
  Company Number: PHHY2015CA084315

PATIENT
  Age: 90 Year
  Sex: Male

DRUGS (1)
  1. SANDOSTATIN LAR DEPOT [Suspect]
     Active Substance: OCTREOTIDE ACETATE
     Indication: CARCINOID TUMOUR
     Dosage: 30 MG, QMO (EVERY 4 WEEKS)
     Route: 030
     Dates: start: 20110511, end: 20160927

REACTIONS (9)
  - Renal failure [Fatal]
  - Pain in extremity [Unknown]
  - Lethargy [Unknown]
  - Nausea [Unknown]
  - Musculoskeletal stiffness [Unknown]
  - Hepatic failure [Unknown]
  - Blood pressure systolic increased [Unknown]
  - Somnolence [Unknown]
  - Decreased appetite [Unknown]

NARRATIVE: CASE EVENT DATE: 20150709
